FAERS Safety Report 23175289 (Version 1)
Quarter: 2023Q4

REPORT INFORMATION
  Report Type: Spontaneous
  Country: CN (occurrence: CN)
  Receive Date: 20231113
  Receipt Date: 20231113
  Transmission Date: 20240109
  Serious: Yes (Hospitalization, Other)
  Sender: FDA-Public Use
  Company Number: None

PATIENT
  Age: 51 Year
  Sex: Female
  Weight: 52 kg

DRUGS (9)
  1. IFOSFAMIDE [Suspect]
     Active Substance: IFOSFAMIDE
     Indication: Ewing^s sarcoma
     Dosage: 3 G, ONCE A DAY, DILUTED WITH 500 ML OF SODIUM CHLORIDE, FIRST CHEMOTHERAPY
     Route: 041
     Dates: start: 20190223, end: 20190228
  2. IFOSFAMIDE [Suspect]
     Active Substance: IFOSFAMIDE
     Indication: Metastasis
  3. SODIUM CHLORIDE [Suspect]
     Active Substance: SODIUM CHLORIDE
     Indication: Medication dilution
     Dosage: (0.9%), 500 ML, ONCE A DAY, USED TO DILUTE 0.1 G OF ETOPOSIDE, FIRST CHEMOTHERAPY
     Route: 041
     Dates: start: 20190223, end: 20190228
  4. SODIUM CHLORIDE [Suspect]
     Active Substance: SODIUM CHLORIDE
     Dosage: (0.9%), 500 ML, ONCE A DAY, USED TO DILUTE 3 G OF IFOSFAMIDE, FIRST CHEMOTHERAPY
     Route: 041
     Dates: start: 20190223, end: 20190228
  5. DEXTROSE [Suspect]
     Active Substance: DEXTROSE\DEXTROSE MONOHYDRATE
     Indication: Medication dilution
     Dosage: (5%), 100 ML, ONCE A DAY, USED TO DILUTE 60 MG OF PIRARUBICIN, FIRST CHEMOTHERAPY
     Route: 041
     Dates: start: 20190301, end: 20190301
  6. ETOPOSIDE [Suspect]
     Active Substance: ETOPOSIDE
     Indication: Ewing^s sarcoma
     Dosage: 0.1 G, ONCE A DAY, DILUTED WITH 500 ML OF SODIUM CHLORIDE, FIRST CHEMOTHERAPY
     Route: 041
     Dates: start: 20190223, end: 20190228
  7. ETOPOSIDE [Suspect]
     Active Substance: ETOPOSIDE
     Indication: Metastasis
  8. PIRARUBICIN HYDROCHLORIDE [Suspect]
     Active Substance: PIRARUBICIN HYDROCHLORIDE
     Indication: Ewing^s sarcoma
     Dosage: 60 MG, ONCE A DAY, DILUTED WITH 100 ML OF GLUCOSE, FIRST CHEMOTHERAPY
     Route: 041
     Dates: start: 20190301, end: 20190301
  9. PIRARUBICIN HYDROCHLORIDE [Suspect]
     Active Substance: PIRARUBICIN HYDROCHLORIDE
     Indication: Metastasis

REACTIONS (2)
  - Myelosuppression [Recovering/Resolving]
  - Anaemia [Unknown]

NARRATIVE: CASE EVENT DATE: 20190305
